FAERS Safety Report 4482113-1 (Version None)
Quarter: 2004Q4

REPORT INFORMATION
  Report Type: 
  Country: None (occurrence: None)
  Receive Date: 20041020
  Receipt Date: 20041004
  Transmission Date: 20050328
  Serious: Yes (Other)
  Sender: FDA-Public Use
  Company Number: DSA_25064_2004

PATIENT
  Sex: 0

DRUGS (3)
  1. DILTIAZEM HYDROCHLORIDE [Suspect]
     Dosage: DF PO
     Route: 048
  2. KETEK [Suspect]
     Dosage: 400 MG Q DAY PO
     Route: 048
  3. NEUROLEPTIC [Concomitant]

REACTIONS (1)
  - TORSADE DE POINTES [None]
